FAERS Safety Report 16786004 (Version 1)
Quarter: 2019Q3

REPORT INFORMATION
  Report Type: Spontaneous
  Country: CA (occurrence: CA)
  Receive Date: 20190909
  Receipt Date: 20190909
  Transmission Date: 20191005
  Serious: Yes (Hospitalization)
  Sender: FDA-Public Use
  Company Number: CA-TEVA-2019-CA-1105273

PATIENT
  Age: 62 Year
  Sex: Female

DRUGS (2)
  1. PROPRANOLOL [Suspect]
     Active Substance: PROPRANOLOL HYDROCHLORIDE
     Indication: OFF LABEL USE
     Dosage: 2 DOSAGE FORMS DAILY;
     Route: 048
  2. PROPRANOLOL [Suspect]
     Active Substance: PROPRANOLOL HYDROCHLORIDE
     Indication: MIGRAINE PROPHYLAXIS

REACTIONS (5)
  - Product use issue [Recovering/Resolving]
  - Chest discomfort [Recovering/Resolving]
  - Product use in unapproved indication [Recovering/Resolving]
  - Wrong schedule [Recovering/Resolving]
  - Off label use [Recovering/Resolving]
